FAERS Safety Report 6678232-1 (Version None)
Quarter: 2010Q2

REPORT INFORMATION
  Report Type: 
  Country: None (occurrence: None)
  Receive Date: 20100408
  Receipt Date: 20100408
  Transmission Date: 20101027
  Serious: Yes (Other)
  Sender: FDA-Public Use
  Company Number: None

PATIENT
  Age: 88 Year
  Sex: Male
  Weight: 66.5 kg

DRUGS (2)
  1. CARVEDILOL [Suspect]
     Indication: ATRIAL FIBRILLATION
     Dosage: 6.25MG BID PO
     Route: 048
     Dates: start: 20080701, end: 20100330
  2. CARVEDILOL [Suspect]
     Indication: HYPERTENSION
     Dosage: 6.25MG BID PO
     Route: 048
     Dates: start: 20080701, end: 20100330

REACTIONS (1)
  - THROMBOCYTOPENIA [None]
